FAERS Safety Report 20887954 (Version 3)
Quarter: 2022Q3

REPORT INFORMATION
  Report Type: Spontaneous
  Country: DE (occurrence: DE)
  Receive Date: 20220528
  Receipt Date: 20220811
  Transmission Date: 20221027
  Serious: Yes (Other)
  Sender: FDA-Public Use
  Company Number: DE-Hikma Pharmaceuticals-DE-H14001-22-01219

PATIENT
  Age: 46 Year
  Sex: Female
  Weight: 52.3 kg

DRUGS (8)
  1. DOCETAXEL [Suspect]
     Active Substance: DOCETAXEL
     Indication: Gastric cancer
     Dosage: 82 MILLIGRAM (2 WEEKS)
     Route: 042
     Dates: start: 20220412, end: 20220426
  2. DOCETAXEL [Suspect]
     Active Substance: DOCETAXEL
     Dosage: 82 MILLIGRAM (2 WEEKS)
     Route: 042
     Dates: start: 20220510
  3. LEUCOVORIN [Suspect]
     Active Substance: LEUCOVORIN
     Indication: Chemotherapy
     Dosage: UNK
     Route: 065
     Dates: start: 20220412, end: 20220426
  4. LEUCOVORIN [Suspect]
     Active Substance: LEUCOVORIN
     Dosage: UNK( 2 TIMES A WEEK)
     Route: 065
     Dates: start: 20220510
  5. OXALIPLATIN [Suspect]
     Active Substance: OXALIPLATIN
     Indication: Gastric cancer
     Dosage: 140 MILLIGRAM (2 WEEKS)
     Route: 042
     Dates: start: 20220412, end: 20220426
  6. OXALIPLATIN [Suspect]
     Active Substance: OXALIPLATIN
     Dosage: 140 MILLIGRAM (2 WEEKS)
     Route: 042
     Dates: start: 20220510
  7. FLUOROURACIL [Suspect]
     Active Substance: FLUOROURACIL
     Indication: Chemotherapy
     Dosage: UNK
     Route: 065
     Dates: start: 20220412, end: 20220426
  8. FLUOROURACIL [Suspect]
     Active Substance: FLUOROURACIL
     Dosage: UNK(2 TIMES A  WEEK)
     Route: 065
     Dates: start: 20220510

REACTIONS (2)
  - Pyrexia [Recovered/Resolved]
  - Chills [Recovered/Resolved]

NARRATIVE: CASE EVENT DATE: 20220426
